FAERS Safety Report 13175686 (Version 1)
Quarter: 2017Q1

REPORT INFORMATION
  Report Type: Spontaneous
  Country: US (occurrence: US)
  Receive Date: 20170131
  Receipt Date: 20170131
  Transmission Date: 20170428
  Serious: Yes (Other)
  Sender: FDA-Public Use
  Company Number: None

PATIENT
  Age: 50 Year
  Sex: Female
  Weight: 125.55 kg

DRUGS (1)
  1. TOPROL XL [Suspect]
     Active Substance: METOPROLOL SUCCINATE
     Indication: AORTIC VALVE REPLACEMENT
     Route: 048

REACTIONS (2)
  - Abdominal pain [None]
  - Rash pruritic [None]

NARRATIVE: CASE EVENT DATE: 20161116
